FAERS Safety Report 6520148-5 (Version None)
Quarter: 2009Q4

REPORT INFORMATION
  Report Type: 
  Country: None (occurrence: None)
  Receive Date: 20091229
  Receipt Date: 20091221
  Transmission Date: 20100525
  Serious: Yes (Other)
  Sender: FDA-Public Use
  Company Number: US-BAYER-200917759BCC

PATIENT
  Age: 11 Day
  Sex: Male
  Weight: 5.897 kg

DRUGS (2)
  1. ALEVE [Suspect]
     Dosage: UNIT DOSE: 220 MG
     Route: 064
     Dates: start: 20090101, end: 20090401
  2. ALEVE [Suspect]
     Dosage: TOTAL DAILY DOSE: 1 DF
     Route: 064
     Dates: start: 20090910

REACTIONS (2)
  - DRUG SCREEN FALSE POSITIVE [None]
  - PREMATURE BABY [None]
